FAERS Safety Report 5934942-2 (Version None)
Quarter: 2008Q4

REPORT INFORMATION
  Report Type: 
  Country: None (occurrence: None)
  Receive Date: 20081027
  Receipt Date: 20081016
  Transmission Date: 20090506
  Serious: Yes (Hospitalization)
  Sender: FDA-Public Use
  Company Number: GXKR2008TR09736

PATIENT
  Age: 6 Year
  Sex: Male

DRUGS (1)
  1. CETIRIZINE [Suspect]
     Indication: RHINITIS ALLERGIC
     Dosage: 5 MG, QD

REACTIONS (3)
  - DYSKINESIA [None]
  - DYSPHAGIA [None]
  - DYSTONIA [None]
